FAERS Safety Report 9563497 (Version 2)
Quarter: 2013Q4

REPORT INFORMATION
  Report Type: Spontaneous
  Country: US (occurrence: None)
  Receive Date: 20121227
  Receipt Date: 20131224
  Transmission Date: 20140711
  Serious: Yes (Hospitalization)
  Sender: FDA-Public Use
  Company Number: PHEH2012US013790

PATIENT
  Age: 23 Year
  Sex: Female

DRUGS (1)
  1. EXJADE [Suspect]

REACTIONS (2)
  - Sickle cell anaemia [None]
  - Maternal exposure during pregnancy [None]
